FAERS Safety Report 10227867 (Version 1)
Quarter: 2014Q2

REPORT INFORMATION
  Report Type: Spontaneous
  Country: DE (occurrence: DE)
  Receive Date: 20140610
  Receipt Date: 20140610
  Transmission Date: 20141212
  Serious: Yes (Other)
  Sender: FDA-Public Use
  Company Number: DE-PFIZER INC-2014153764

PATIENT
  Age: 32 Year
  Sex: Female

DRUGS (15)
  1. SERTRALINE HCL [Suspect]
     Dosage: 100 MG, 1X/DAY
     Route: 048
     Dates: start: 20120419
  2. SERTRALINE HCL [Interacting]
     Dosage: 200 MG, 1X/DAY
     Route: 048
     Dates: start: 20120420, end: 20120510
  3. SERTRALINE HCL [Interacting]
     Dosage: 150 MG, 1X/DAY
     Route: 048
     Dates: start: 20120511, end: 20120522
  4. SERTRALINE HCL [Interacting]
     Dosage: 50 MG, 1X/DAY
     Route: 048
     Dates: start: 20120523, end: 20120525
  5. VENLAFAXINE HCL [Interacting]
     Dosage: 37.5 MG, DAILY
     Route: 048
     Dates: start: 20120504, end: 20120510
  6. VENLAFAXINE HCL [Interacting]
     Dosage: 75 MG, 1X/DAY
     Route: 048
     Dates: start: 20120511, end: 20120514
  7. VENLAFAXINE HCL [Interacting]
     Dosage: 150 MG, 1X/DAY
     Route: 048
     Dates: start: 20120515, end: 20120524
  8. VENLAFAXINE HCL [Interacting]
     Dosage: 225 MG, 1X/DAY
     Route: 048
     Dates: start: 20120525, end: 20120531
  9. VENLAFAXINE HCL [Interacting]
     Dosage: 300 MG, 1X/DAY
     Route: 048
     Dates: start: 20120601
  10. SEROQUEL [Suspect]
     Dosage: 50 MG, 1X/DAY
     Route: 048
     Dates: start: 20120412, end: 20120514
  11. SEROQUEL [Suspect]
     Dosage: 125 MG, 1X/DAY
     Route: 048
     Dates: start: 20120515, end: 20120515
  12. SEROQUEL [Suspect]
     Dosage: 150 MG, 1X/DAY
     Route: 048
     Dates: start: 20120516, end: 20120531
  13. SEROQUEL [Suspect]
     Dosage: 200 MG, 1X/DAY
     Route: 048
     Dates: start: 20120601, end: 20120601
  14. SEROQUEL [Suspect]
     Dosage: 250 MG, 1X/DAY
     Route: 048
     Dates: start: 20120602, end: 20120605
  15. SEROQUEL [Suspect]
     Dosage: 200 MG, 1X/DAY
     Route: 048
     Dates: start: 20120606

REACTIONS (3)
  - Drug interaction [Recovered/Resolved]
  - Dermatitis allergic [Recovered/Resolved]
  - Rash [Recovered/Resolved]
